FAERS Safety Report 15860578 (Version 1)
Quarter: 2019Q1

REPORT INFORMATION
  Report Type: Spontaneous
  Country: AU (occurrence: AU)
  Receive Date: 20190123
  Receipt Date: 20190123
  Transmission Date: 20190417
  Serious: Yes (Death)
  Sender: FDA-Public Use
  Company Number: AU-BAXTER-2019BAX001232

PATIENT

DRUGS (13)
  1. WATER FOR INJECTION [Suspect]
     Active Substance: WATER
     Indication: PARENTERAL NUTRITION
     Dosage: (BAXTER OFF-LICENSE PRODUCT)
     Route: 065
  2. SODIUM CHLORIDE. [Suspect]
     Active Substance: SODIUM CHLORIDE
     Indication: PARENTERAL NUTRITION
     Dosage: SODIUM CHLORIDE 4 MMOL/ML (BAXTER OFF-LICENSE PRODUCT)
     Route: 065
  3. POTASSIUM CHLORIDE. [Suspect]
     Active Substance: POTASSIUM CHLORIDE
     Indication: PARENTERAL NUTRITION
     Dosage: POTASSIUM CHLORIDE 3 MMOL/ML (BAXTER OFF-LICENSE PRODUCT)
     Route: 065
  4. CERNEVIT [Suspect]
     Active Substance: VITAMINS
     Indication: PARENTERAL NUTRITION
     Route: 065
  5. CALCIUM GLUCONATE. [Suspect]
     Active Substance: CALCIUM GLUCONATE
     Indication: PARENTERAL NUTRITION
     Dosage: CALCIUM GLUCONATE 0.22 MMOL/ML (BAXTER OFF-LICENSE PRODUCT)
     Route: 065
  6. AUSPEN TRACE ELEMENTS [Suspect]
     Active Substance: MINERALS
     Indication: PARENTERAL NUTRITION
     Dosage: (BAXTER OFF-LICENSE PRODUCT)
     Route: 065
  7. GLUCOSE [Suspect]
     Active Substance: DEXTROSE
     Indication: PARENTERAL NUTRITION
     Dosage: (BAXTER OFF-LICENSE PRODUCT)
     Route: 065
  8. SMOFLIPID [Suspect]
     Active Substance: FISH OIL\MEDIUM-CHAIN TRIGLYCERIDES\OLIVE OIL\SOYBEAN OIL
     Indication: PARENTERAL NUTRITION
     Route: 065
  9. POTASSIUM DI-H PHOSPHATE [Suspect]
     Active Substance: POTASSIUM PHOSPHATE, MONOBASIC
     Indication: PARENTERAL NUTRITION
     Dosage: POTASSIUM DI-H PHOSPHATE 1MMOL/ML (BAXTER OFF-LICENSE PRODUCT)
     Route: 065
  10. SYNTHAMIN [Suspect]
     Active Substance: AMINO ACIDS
     Indication: PARENTERAL NUTRITION
     Route: 065
  11. STERILE WATER [Suspect]
     Active Substance: WATER
     Indication: PARENTERAL NUTRITION
     Route: 065
  12. SODIUM ACETATE. [Suspect]
     Active Substance: SODIUM ACETATE
     Indication: PARENTERAL NUTRITION
     Dosage: SODIUM ACETATE 2 MMOL/ML (BAXTER OFF-LICENSE PRODUCT)
     Route: 065
  13. MAGNESIUM SULFATE. [Suspect]
     Active Substance: MAGNESIUM SULFATE
     Indication: PARENTERAL NUTRITION
     Dosage: MAGNESIUM SULFATE 2 MMOL/ML (BAXTER OFF-LICENSE PRODUCT)
     Route: 065

REACTIONS (1)
  - Death [Fatal]

NARRATIVE: CASE EVENT DATE: 201901
